FAERS Safety Report 7562691-6 (Version None)
Quarter: 2011Q2

REPORT INFORMATION
  Report Type: 
  Country: None (occurrence: None)
  Receive Date: 20110622
  Receipt Date: 20110617
  Transmission Date: 20111010
  Serious: Yes (Other)
  Sender: FDA-Public Use
  Company Number: DE-PFIZER INC-2011133743

PATIENT
  Age: 52 Year
  Sex: Female

DRUGS (1)
  1. VARENICLINE TARTRATE [Suspect]
     Dosage: UNK
     Dates: end: 20101217

REACTIONS (5)
  - PYREXIA [None]
  - EYE IRRITATION [None]
  - SPEECH DISORDER [None]
  - SKIN DISORDER [None]
  - ABNORMAL SENSATION IN EYE [None]
